FAERS Safety Report 6013436-2 (Version None)
Quarter: 2008Q4

REPORT INFORMATION
  Report Type: 
  Country: None (occurrence: None)
  Receive Date: 20081218
  Receipt Date: 20081218
  Transmission Date: 20090506
  Serious: No
  Sender: FDA-Public Use
  Company Number: None

PATIENT
  Sex: Female
  Weight: 132.27 kg

DRUGS (9)
  1. CRESTOR [Suspect]
     Dosage: 40MG TABLET 40 MG QD ORAL
     Route: 048
     Dates: start: 20081124, end: 20081217
  2. ALBUTEROL [Concomitant]
  3. ALBUTEROL [Concomitant]
  4. AZMACORT [Concomitant]
  5. COLACE (DOCUSATE SODIUM) [Concomitant]
  6. EPIPEN (EPINEPHERINE AUTOINJECTOR) [Concomitant]
  7. GLYBURIDE [Concomitant]
  8. SEREVENT DISKUS (SALMETEROL DISKUS) [Concomitant]
  9. SINGULAIR [Concomitant]

REACTIONS (1)
  - GASTROINTESTINAL DISORDER [None]
